FAERS Safety Report 9190233 (Version 1)
Quarter: 2013Q1

REPORT INFORMATION
  Report Type: Spontaneous
  Country: US (occurrence: None)
  Receive Date: 20120703
  Receipt Date: 20120703
  Transmission Date: 20140127
  Serious: Yes (Other)
  Sender: FDA-Public Use
  Company Number: PHEH2012US010189

PATIENT
  Age: 43 Year
  Sex: Female

DRUGS (4)
  1. GILENYA (FTY) CAPSULE, 0.5MG [Suspect]
     Indication: MULTIPLE SCLEROSIS
     Route: 048
     Dates: start: 20120511
  2. PRENATAL VITAMINS [Concomitant]
  3. IRON [Concomitant]
  4. CALCIUM [Concomitant]

REACTIONS (1)
  - Heart rate decreased [None]
